FAERS Safety Report 9371628 (Version 2)
Quarter: 2013Q4

REPORT INFORMATION
  Report Type: Spontaneous
  Country: GB (occurrence: GB)
  Receive Date: 20130627
  Receipt Date: 20131105
  Transmission Date: 20140711
  Serious: Yes (Other)
  Sender: FDA-Public Use
  Company Number: PHFR2013GB003622

PATIENT
  Age: 12 Year
  Sex: Female
  Weight: 30 kg

DRUGS (5)
  1. METHYLPHENIDATE [Suspect]
     Indication: ATTENTION DEFICIT/HYPERACTIVITY DISORDER
     Dosage: 10 MG, AFTERNOON DOSE
     Route: 048
     Dates: start: 20130107, end: 20130108
  2. MELATONIN [Concomitant]
     Dosage: 20 MG, TAKEN AT NIGHT.
  3. MELATONIN [Concomitant]
     Dosage: TAKEN AT NIGHT.
  4. EQUASYM [Concomitant]
     Dosage: 10 MG, TAKEN IN THE MORNING
  5. EQUASYM [Concomitant]
     Dosage: 20 MG, TAKEN IN THE MORNING
     Dates: start: 200811

REACTIONS (2)
  - Fatigue [Recovered/Resolved]
  - Pallor [Recovered/Resolved]
